FAERS Safety Report 4280552-5 (Version None)
Quarter: 2004Q1

REPORT INFORMATION
  Report Type: 
  Country: None (occurrence: None)
  Receive Date: 20040127
  Receipt Date: 20040120
  Transmission Date: 20041129
  Serious: Yes (Hospitalization)
  Sender: FDA-Public Use
  Company Number: 200410173EU

PATIENT
  Age: 84 Year
  Sex: Male

DRUGS (9)
  1. CLAFORAN [Suspect]
     Indication: PNEUMONIA ASPIRATION
     Dosage: IV
     Route: 042
     Dates: start: 20031205, end: 20031208
  2. CLAFORAN [Suspect]
     Indication: PNEUMONIA ASPIRATION
     Dates: start: 20031201, end: 20031201
  3. CLAFORAN [Suspect]
     Indication: PNEUMONIA ASPIRATION
     Dates: start: 20031230, end: 20040104
  4. FLAGYL [Suspect]
     Indication: PYREXIA
     Dates: start: 20031201, end: 20031201
  5. SPIRONOLACTONE [Suspect]
     Indication: CARDIAC FAILURE
     Dosage: 25 MG/DAY
  6. SINEMET [Suspect]
     Indication: PARKINSON'S DISEASE
     Dosage: 3 U/DAY
  7. SELEGILINE HYDROCHLORIDE (ELDEPRYL) [Concomitant]
  8. DIGITOXIN [Concomitant]
  9. RAMIPRIL [Concomitant]

REACTIONS (5)
  - AGRANULOCYTOSIS [None]
  - HAEMOGLOBIN DECREASED [None]
  - NEUTROPENIA [None]
  - PLATELET COUNT INCREASED [None]
  - PYREXIA [None]
